FAERS Safety Report 8419922-X (Version None)
Quarter: 2012Q2

REPORT INFORMATION
  Report Type: 
  Country: None (occurrence: None)
  Receive Date: 20120607
  Receipt Date: 20120103
  Transmission Date: 20120825
  Serious: Yes (Other)
  Sender: FDA-Public Use
  Company Number: US-ABBOTT-11P-163-0734621-00

PATIENT
  Sex: Male
  Weight: 95.34 kg

DRUGS (12)
  1. PURINETHOL [Concomitant]
     Indication: CROHN'S DISEASE
  2. VITAMIN-MINERAL COMPOUND TAB [Concomitant]
     Indication: MACULAR DEGENERATION
  3. TOPROL-XL [Concomitant]
     Indication: HYPERTENSION
  4. PREDNISONE [Concomitant]
     Indication: CROHN'S DISEASE
  5. SULAR [Concomitant]
     Indication: HYPERTENSION
  6. HYDROCHLOROTHIAZDE TAB [Concomitant]
     Indication: HYPERTENSION
  7. CELEBREX [Concomitant]
     Indication: BACK PAIN
  8. HUMIRA [Suspect]
     Indication: CROHN'S DISEASE
     Dosage: 40 MG QOW
     Dates: start: 20090101
  9. CODEINE SULFATE [Concomitant]
     Indication: DIARRHOEA
  10. CELEBREX [Concomitant]
     Indication: NECK PAIN
  11. LOMOTIL [Concomitant]
     Indication: DIARRHOEA
     Dosage: DAILY DOSE: 8 PILLS
  12. CENTRUM [Concomitant]
     Indication: VITAMIN SUPPLEMENTATION

REACTIONS (12)
  - SCAB [None]
  - PARANOIA [None]
  - LARYNGEAL OEDEMA [None]
  - DYSPHONIA [None]
  - DRUG INEFFECTIVE [None]
  - HERPES ZOSTER [None]
  - EYE PAIN [None]
  - SKIN PAPILLOMA [None]
  - NASAL CONGESTION [None]
  - ORAL PAIN [None]
  - HEART RATE INCREASED [None]
  - MELANOCYTIC NAEVUS [None]
